APPROVED DRUG PRODUCT: MARCAINE
Active Ingredient: BUPIVACAINE HYDROCHLORIDE
Strength: 0.75%
Dosage Form/Route: INJECTABLE;SPINAL
Application: N018692 | Product #001 | TE Code: AP
Applicant: HOSPIRA INC
Approved: May 4, 1984 | RLD: Yes | RS: Yes | Type: RX